FAERS Safety Report 6470454-8 (Version None)
Quarter: 2009Q4

REPORT INFORMATION
  Report Type: 
  Country: None (occurrence: None)
  Receive Date: 20091203
  Receipt Date: 20091125
  Transmission Date: 20100525
  Serious: Yes (Hospitalization)
  Sender: FDA-Public Use
  Company Number: CA-JNJFOC-20091101105

PATIENT
  Sex: Male
  Weight: 115 kg

DRUGS (20)
  1. GOLIMUMAB [Suspect]
     Route: 058
  2. GOLIMUMAB [Suspect]
     Indication: RHEUMATOID ARTHRITIS
     Route: 058
  3. PLACEBO [Suspect]
     Indication: RHEUMATOID ARTHRITIS
     Route: 058
  4. CELEBREX [Concomitant]
     Route: 048
  5. ELTROXIN [Concomitant]
     Route: 048
  6. PLAQUENIL [Concomitant]
     Route: 048
  7. ACTONEL [Concomitant]
     Route: 048
  8. NEXIUM [Concomitant]
     Route: 048
  9. LIPITOR [Concomitant]
     Route: 048
  10. FLOMAX [Concomitant]
     Route: 048
  11. FOLIC ACID [Concomitant]
     Route: 048
  12. NITROGLYCERIN [Concomitant]
     Route: 060
  13. TRAMACET [Concomitant]
     Route: 048
  14. DIOVAN [Concomitant]
     Route: 048
  15. NORVASC [Concomitant]
     Route: 048
  16. ZITHROMAX [Concomitant]
     Route: 042
  17. SOLU-CORTEF [Concomitant]
     Route: 042
  18. PREDNISONE [Concomitant]
     Route: 048
  19. SEPTRA [Concomitant]
     Route: 042
  20. PIPERACILLIN AND TAZOBACTAM [Concomitant]
     Route: 042

REACTIONS (1)
  - PNEUMONIA [None]
